FAERS Safety Report 8717829 (Version 2)
Quarter: 2012Q4

REPORT INFORMATION
  Report Type: Report from Study
  Country: GB (occurrence: GB)
  Receive Date: 20120810
  Receipt Date: 20121122
  Transmission Date: 20130627
  Serious: Yes (Hospitalization)
  Sender: FDA-Public Use
  Company Number: GB-ROCHE-1096967

PATIENT
  Age: 69 Year
  Sex: Female

DRUGS (1)
  1. RITUXIMAB [Suspect]
     Indication: PRODUCT USED FOR UNKNOWN INDICATION
     Route: 065
     Dates: start: 20100519

REACTIONS (5)
  - Joint dislocation [Unknown]
  - Humerus fracture [Unknown]
  - Peripheral nerve injury [Unknown]
  - Hypoaesthesia [Unknown]
  - Humerus fracture [Unknown]
